FAERS Safety Report 8419209-5 (Version None)
Quarter: 2012Q2

REPORT INFORMATION
  Report Type: 
  Country: None (occurrence: None)
  Receive Date: 20120607
  Receipt Date: 20120523
  Transmission Date: 20120825
  Serious: Yes (Other)
  Sender: FDA-Public Use
  Company Number: AU-WATSON-2012-09470

PATIENT
  Age: 60 Year
  Sex: Female

DRUGS (1)
  1. ALENDRONATE SODIUM [Suspect]
     Indication: OSTEOPOROSIS POSTMENOPAUSAL
     Dosage: UNK
     Route: 065

REACTIONS (3)
  - PELVIC FRACTURE [None]
  - HUMERUS FRACTURE [None]
  - FEMUR FRACTURE [None]
